FAERS Safety Report 7223106-0 (Version None)
Quarter: 2011Q1

REPORT INFORMATION
  Report Type: 
  Country: None (occurrence: None)
  Receive Date: 20110112
  Receipt Date: 20100115
  Transmission Date: 20110831
  Serious: No
  Sender: FDA-Public Use
  Company Number: US-ALLERGAN-1000496US

PATIENT
  Age: 61 Year
  Sex: Female

DRUGS (6)
  1. RESTASIS [Suspect]
     Indication: DRY EYE
     Dosage: 1 GTT, BID
     Route: 047
     Dates: start: 20091124
  2. FOSAMAX [Concomitant]
  3. CITRACAL [Concomitant]
     Dosage: 5/DAY
  4. LOTEMAX [Concomitant]
  5. FISH OIL [Concomitant]
     Dosage: 100 MG, TID
  6. LEVOTHYROXINE [Concomitant]
     Indication: HYPOTHYROIDISM

REACTIONS (2)
  - DRUG ADMINISTRATION ERROR [None]
  - SKIN CHAPPED [None]
